FAERS Safety Report 9489652 (Version 1)
Quarter: 2013Q3

REPORT INFORMATION
  Report Type: Report from Study
  Country: US (occurrence: US)
  Receive Date: 20130829
  Receipt Date: 20130829
  Transmission Date: 20140515
  Serious: Yes (Other)
  Sender: FDA-Public Use
  Company Number: US-ABBOTT-13P-163-1137758-00

PATIENT
  Age: 43 Year
  Sex: Female

DRUGS (18)
  1. HUMIRA [Suspect]
     Indication: CROHN^S DISEASE
     Dates: start: 201306, end: 20130722
  2. LIALDA [Concomitant]
     Indication: CROHN^S DISEASE
  3. PREDNISONE [Concomitant]
     Indication: CROHN^S DISEASE
  4. PROBIOTICS [Concomitant]
     Indication: CROHN^S DISEASE
  5. PRILOSEC [Concomitant]
     Indication: CROHN^S DISEASE
  6. AMLODIPINE [Concomitant]
     Indication: HYPERTENSION
  7. FLAGYL [Concomitant]
     Indication: CROHN^S DISEASE
  8. MINOCYCLINE [Concomitant]
     Indication: ACNE
  9. BENTYL [Concomitant]
     Indication: ABDOMINAL RIGIDITY
  10. PHENERGAN [Concomitant]
     Indication: NAUSEA
  11. B12 [Concomitant]
     Indication: VITAMIN SUPPLEMENTATION
     Dosage: SHOT
  12. FOLIC ACID [Concomitant]
     Indication: VITAMIN SUPPLEMENTATION
  13. VIT D3 [Concomitant]
     Indication: VITAMIN SUPPLEMENTATION
  14. ZINC [Concomitant]
     Indication: SUPPLEMENTATION THERAPY
  15. BIOTIN [Concomitant]
     Indication: VITAMIN SUPPLEMENTATION
  16. PERCOCET [Concomitant]
     Indication: PAIN
     Dosage: AS NEEDED
  17. ADVAIR [Concomitant]
     Indication: ASTHMA
     Dosage: 100/50, TWICE DAILY
  18. PROVENTIL [Concomitant]
     Indication: ASTHMA

REACTIONS (7)
  - Ovarian cyst [Unknown]
  - Colectomy [Unknown]
  - Nausea [Recovering/Resolving]
  - Vomiting [Recovering/Resolving]
  - Weight decreased [Recovering/Resolving]
  - Pain [Recovering/Resolving]
  - Drug ineffective [Unknown]
